FAERS Safety Report 7236512-5 (Version None)
Quarter: 2011Q1

REPORT INFORMATION
  Report Type: 
  Country: None (occurrence: None)
  Receive Date: 20110120
  Receipt Date: 20110119
  Transmission Date: 20110831
  Serious: No
  Sender: FDA-Public Use
  Company Number: US-TEVA-263839USA

PATIENT
  Sex: Female
  Weight: 47.67 kg

DRUGS (1)
  1. ALBUTEROL SULFATE AUTOHALER [Suspect]
     Dosage: 1 PUFF EVERY 3 TO 4 HRS
     Route: 055

REACTIONS (1)
  - COUGH [None]
